FAERS Safety Report 10396708 (Version 1)
Quarter: 2014Q1

REPORT INFORMATION
  Report Type: Spontaneous
  Country: US (occurrence: None)
  Receive Date: 20130815
  Receipt Date: 20130815
  Transmission Date: 20141002
  Serious: Yes (Other)
  Sender: FDA-Public Use
  Company Number: ADR-2012-01630

PATIENT
  Sex: Male

DRUGS (3)
  1. LIORESAL INTRATHECAL(BACLOFEN INJECTION) 2000 MCG/ML [Suspect]
     Indication: MUSCLE SPASTICITY
     Dosage: 96.0 MCG/DAY
  2. LIORESAL INTRATHECAL(BACLOFEN INJECTION) 2000 MCG/ML [Suspect]
     Indication: CEREBRAL PALSY
     Dosage: 96.0 MCG/DAY
  3. SALINE [Concomitant]

REACTIONS (1)
  - Therapeutic response decreased [None]
